FAERS Safety Report 24787473 (Version 1)
Quarter: 2024Q4

REPORT INFORMATION
  Report Type: Spontaneous
  Country: US (occurrence: US)
  Receive Date: 20241230
  Receipt Date: 20241230
  Transmission Date: 20250115
  Serious: No
  Sender: ROCHE
  Company Number: US-ROCHE-10000160986

PATIENT

DRUGS (2)
  1. BEVACIZUMAB [Suspect]
     Active Substance: BEVACIZUMAB
     Indication: Metastatic renal cell carcinoma
     Route: 065
     Dates: start: 201208, end: 201210
  2. PAZOPANIB [Concomitant]
     Active Substance: PAZOPANIB

REACTIONS (1)
  - Disease progression [Unknown]
